FAERS Safety Report 12126879 (Version 2)
Quarter: 2016Q1

REPORT INFORMATION
  Report Type: Spontaneous
  Country: None (occurrence: DE)
  Receive Date: 20160229
  Receipt Date: 20160308
  Transmission Date: 20160526
  Serious: Yes (Hospitalization)
  Sender: FDA-Public Use
  Company Number: DE-MERCK KGAA-1048473

PATIENT

DRUGS (1)
  1. NOVOTHYROX [Suspect]
     Active Substance: LEVOTHYROXINE SODIUM

REACTIONS (8)
  - Aortic valve incompetence [None]
  - Tricuspid valve incompetence [None]
  - Hypotension [None]
  - Arrhythmia [None]
  - Mitral valve incompetence [None]
  - Muscular weakness [None]
  - Hypertensive crisis [None]
  - Pneumonia [None]
